FAERS Safety Report 17594419 (Version 1)
Quarter: 2020Q1

REPORT INFORMATION
  Report Type: Spontaneous
  Country: US (occurrence: US)
  Receive Date: 20200327
  Receipt Date: 20200327
  Transmission Date: 20200409
  Serious: No
  Sender: FDA-Public Use
  Company Number: US-TOLMAR, INC.-20US020770

PATIENT
  Age: 68 Year
  Sex: Male

DRUGS (1)
  1. ELIGARD [Suspect]
     Active Substance: LEUPROLIDE ACETATE
     Indication: PROSTATE CANCER
     Dosage: UNK
     Route: 065
     Dates: start: 2019

REACTIONS (7)
  - Gait disturbance [Not Recovered/Not Resolved]
  - Anaemia [Not Recovered/Not Resolved]
  - Asthenia [Recovered/Resolved]
  - Hot flush [Not Recovered/Not Resolved]
  - Lethargy [Recovered/Resolved]
  - Nocturia [Not Recovered/Not Resolved]
  - Sleep disorder [Not Recovered/Not Resolved]

NARRATIVE: CASE EVENT DATE: 201911
